FAERS Safety Report 18184135 (Version 3)
Quarter: 2020Q3

REPORT INFORMATION
  Report Type: Spontaneous
  Country: AU (occurrence: AU)
  Receive Date: 20200823
  Receipt Date: 20200920
  Transmission Date: 20201103
  Serious: No
  Sender: FDA-Public Use
  Company Number: AU-AMGEN-AUSSP2020134189

PATIENT
  Age: 52 Year
  Sex: Female

DRUGS (1)
  1. RISTEMPA [Suspect]
     Active Substance: PEGFILGRASTIM
     Indication: NEUTROPENIA
     Dosage: 6 MILLIGRAM, AFTER CHEMO
     Route: 065

REACTIONS (3)
  - Device issue [Unknown]
  - Injection site haemorrhage [Unknown]
  - Incorrect dose administered by device [Unknown]

NARRATIVE: CASE EVENT DATE: 20200815
